FAERS Safety Report 17438642 (Version 8)
Quarter: 2020Q3

REPORT INFORMATION
  Report Type: Report from Study
  Country: DE (occurrence: DE)
  Receive Date: 20200220
  Receipt Date: 20200923
  Transmission Date: 20201102
  Serious: Yes (Death, Hospitalization)
  Sender: FDA-Public Use
  Company Number: DE-ROCHE-2501844

PATIENT
  Age: 69 Year
  Sex: Female
  Weight: 75 kg

DRUGS (34)
  1. PACLITAXEL. [Suspect]
     Active Substance: PACLITAXEL
     Indication: MALIGNANT NEOPLASM OF UNKNOWN PRIMARY SITE
     Dosage: INDUCTION PHASE
     Route: 042
     Dates: start: 20190509
  2. ENOXAPARIN [Concomitant]
     Active Substance: ENOXAPARIN
     Indication: PROPHYLAXIS
     Route: 058
     Dates: start: 20190927, end: 20190929
  3. LAXANS [Concomitant]
     Indication: CONSTIPATION
     Route: 048
     Dates: start: 20190620
  4. BISOPROLOL [Concomitant]
     Active Substance: BISOPROLOL
     Route: 048
  5. LASIX [Concomitant]
     Active Substance: FUROSEMIDE
     Indication: OEDEMA PERIPHERAL
     Route: 042
     Dates: start: 20191226
  6. THIAMAZOL [Concomitant]
     Active Substance: METHIMAZOLE
     Route: 048
  7. METOCLOPRAMIDE. [Concomitant]
     Active Substance: METOCLOPRAMIDE
     Indication: PROPHYLAXIS
     Dosage: DOSE: 30
     Route: 048
     Dates: start: 20190913
  8. CEFTAZIDIME. [Concomitant]
     Active Substance: CEFTAZIDIME
     Indication: LEUKOCYTURIA
     Route: 042
     Dates: start: 20190926
  9. CEFTAZIDIME. [Concomitant]
     Active Substance: CEFTAZIDIME
     Route: 042
     Dates: start: 20190928, end: 20190929
  10. DULOXETINE. [Concomitant]
     Active Substance: DULOXETINE
     Indication: PROPHYLAXIS
     Route: 048
     Dates: start: 20190927
  11. BISOPROLOL [Concomitant]
     Active Substance: BISOPROLOL
     Route: 048
     Dates: start: 20191214, end: 20191214
  12. CARBOPLATIN. [Suspect]
     Active Substance: CARBOPLATIN
     Indication: MALIGNANT NEOPLASM OF UNKNOWN PRIMARY SITE
     Dosage: INDUCTION PHASE?DATE OF LAST DOSE OF (550 MG) OF CARBOPLATIN PRIOR TO SAE/AESI ONSET 09/MAY/2019 AT
     Route: 042
     Dates: start: 20190509
  13. MACROGOL [Concomitant]
     Active Substance: POLYETHYLENE GLYCOLS
     Indication: PROPHYLAXIS
     Dosage: DOSE: 2 (OTHER)
     Route: 048
     Dates: start: 20190928, end: 20190930
  14. HYDROMORPHONE [Concomitant]
     Active Substance: HYDROMORPHONE
     Indication: ABDOMINAL PAIN LOWER
     Route: 048
     Dates: start: 20191007, end: 20191118
  15. BISOPROLOL [Concomitant]
     Active Substance: BISOPROLOL
     Indication: TACHYCARDIA
     Route: 048
     Dates: start: 20191215
  16. PANTOPRAZOL [Concomitant]
     Active Substance: PANTOPRAZOLE SODIUM
     Indication: PROPHYLAXIS
  17. CYMBALTA [Concomitant]
     Active Substance: DULOXETINE HYDROCHLORIDE
     Route: 048
  18. ONDANSETRON [Concomitant]
     Active Substance: ONDANSETRON
     Indication: VOMITING
     Route: 048
     Dates: start: 20190913
  19. ENOXAPARIN [Concomitant]
     Active Substance: ENOXAPARIN
     Route: 058
     Dates: start: 20191212
  20. PIRITRAMID [Concomitant]
     Indication: ABDOMINAL PAIN LOWER
     Route: 058
     Dates: start: 20191219, end: 20191219
  21. ATEZOLIZUMAB. [Suspect]
     Active Substance: ATEZOLIZUMAB
     Indication: MALIGNANT NEOPLASM OF UNKNOWN PRIMARY SITE
     Dosage: DATE OF LAST DOSE OF ATEZOLIZUMAB PRIOR TO EVENT:09/DEC/2019
     Route: 041
     Dates: start: 20191209
  22. NOVALGIN (METAMIZOLE SODIUM) [Concomitant]
     Active Substance: METAMIZOLE SODIUM
  23. FENTANYL. [Concomitant]
     Active Substance: FENTANYL
     Indication: ABDOMINAL PAIN LOWER
     Route: 062
     Dates: start: 20191117
  24. CARBOPLATIN. [Suspect]
     Active Substance: CARBOPLATIN
     Indication: MALIGNANT NEOPLASM OF UNKNOWN PRIMARY SITE
     Dosage: TREATMENT PHASE?DATE OF LAST TREATMENT STUDY DRUG CARBOPLATIN ADMINISTERED PRIOR TO SAE/AESI ONSET:
     Route: 042
     Dates: start: 20190805
  25. PACLITAXEL. [Suspect]
     Active Substance: PACLITAXEL
     Indication: MALIGNANT NEOPLASM OF UNKNOWN PRIMARY SITE
     Dosage: TREATMENT PHASE?DATE OF LAST DOSE OF TREATMENT STUDY DRUG PACLITAXEL PRIOR TO SAE/AESI ONSET: 05/AUG
     Route: 042
     Dates: start: 20190805
  26. NOVALGIN (METAMIZOLE SODIUM) [Concomitant]
     Active Substance: METAMIZOLE SODIUM
     Route: 048
     Dates: start: 20190715
  27. TRIMIPRAMINE [Concomitant]
     Active Substance: TRIMIPRAMINE
     Indication: PROPHYLAXIS
     Route: 048
     Dates: start: 20190401
  28. HYDROMORPHONE [Concomitant]
     Active Substance: HYDROMORPHONE
     Route: 048
     Dates: start: 20191119
  29. PIRITRAMID [Concomitant]
     Route: 058
     Dates: start: 20191222, end: 20191222
  30. TOREM [Concomitant]
     Active Substance: TORSEMIDE
     Indication: OEDEMA PERIPHERAL
     Route: 065
     Dates: start: 20191225, end: 20191225
  31. PANTOPRAZOL [Concomitant]
     Active Substance: PANTOPRAZOLE SODIUM
     Route: 042
     Dates: start: 20190912, end: 20190912
  32. BUDESONID [Concomitant]
     Active Substance: BUDESONIDE
     Dosage: INHALATION
  33. METOCLOPRAMIDE. [Concomitant]
     Active Substance: METOCLOPRAMIDE
     Indication: VOMITING
     Dosage: 1 AMPULE
     Route: 042
     Dates: start: 20190912, end: 20190912
  34. METOCLOPRAMIDE. [Concomitant]
     Active Substance: METOCLOPRAMIDE
     Dosage: DOSE: 1 AMPULE
     Route: 042
     Dates: start: 20190916, end: 20190916

REACTIONS (2)
  - Malignant neoplasm progression [Fatal]
  - Vomiting [Not Recovered/Not Resolved]

NARRATIVE: CASE EVENT DATE: 20191212
